FAERS Safety Report 5648548-6 (Version None)
Quarter: 2008Q1

REPORT INFORMATION
  Report Type: 
  Country: None (occurrence: None)
  Receive Date: 20080304
  Receipt Date: 20080227
  Transmission Date: 20080703
  Serious: Yes (Hospitalization)
  Sender: FDA-Public Use
  Company Number: HR-AVENTIS-200811883GDDC

PATIENT
  Age: 35 Year
  Sex: Female
  Weight: 77 kg

DRUGS (6)
  1. INSULIN GLARGINE [Suspect]
     Indication: DIABETES MELLITUS
     Route: 058
     Dates: start: 20070830
  2. INSULIN LISPRO [Suspect]
     Indication: DIABETES MELLITUS
     Route: 058
     Dates: start: 20070802
  3. AUTOPEN INSULIN INJECTION PEN [Suspect]
     Route: 058
  4. TRANDOLAPRIL [Concomitant]
     Dates: start: 20040804
  5. ETHYLESTRENOL [Concomitant]
     Dates: start: 20070903
  6. VITAMINS NOS [Concomitant]

REACTIONS (2)
  - DIABETES MELLITUS INADEQUATE CONTROL [None]
  - DIABETIC COMPLICATION [None]
